FAERS Safety Report 7126030-7 (Version None)
Quarter: 2010Q4

REPORT INFORMATION
  Report Type: 
  Country: None (occurrence: None)
  Receive Date: 20101129
  Receipt Date: 20101119
  Transmission Date: 20110411
  Serious: Yes (Life-Threatening)
  Sender: FDA-Public Use
  Company Number: JP-JNJFOC-20100600730

PATIENT
  Sex: Male
  Weight: 57 kg

DRUGS (7)
  1. ITRIZOLE [Suspect]
     Indication: ASPERGILLOMA
     Route: 041
  2. ITRIZOLE [Suspect]
     Route: 041
  3. ITRIZOLE [Suspect]
     Route: 048
  4. MUCODYNE [Concomitant]
     Route: 048
  5. MEDICON [Concomitant]
     Route: 048
  6. MUCOSTA [Concomitant]
     Route: 048
  7. BROCIN CODEINE [Concomitant]
     Route: 048

REACTIONS (5)
  - DYSPNOEA [None]
  - HYPOKALAEMIA [None]
  - LUNG DISORDER [None]
  - MALAISE [None]
  - PYREXIA [None]
